FAERS Safety Report 24142475 (Version 2)
Quarter: 2025Q2

REPORT INFORMATION
  Report Type: Spontaneous
  Country: FI (occurrence: FI)
  Receive Date: 20240726
  Receipt Date: 20250514
  Transmission Date: 20250716
  Serious: Yes (Life-Threatening, Hospitalization, Other)
  Sender: SANDOZ
  Company Number: FI-NOVPHSZ-PHHY2017FI021264

PATIENT
  Age: 49 Year
  Sex: Male

DRUGS (37)
  1. DIAZEPAM [Suspect]
     Active Substance: DIAZEPAM
     Indication: Schizophrenia
     Route: 065
  2. GLIMEPIRIDE [Suspect]
     Active Substance: GLIMEPIRIDE
     Dosage: 30 IU, UNK
     Route: 065
  3. GLIMEPIRIDE [Suspect]
     Active Substance: GLIMEPIRIDE
     Indication: Type 2 diabetes mellitus
     Dosage: 4 MG, QD
     Route: 065
  4. GLIMEPIRIDE [Suspect]
     Active Substance: GLIMEPIRIDE
     Route: 065
  5. GLIMEPIRIDE [Suspect]
     Active Substance: GLIMEPIRIDE
     Route: 065
  6. HALOPERIDOL [Suspect]
     Active Substance: HALOPERIDOL
     Indication: Product used for unknown indication
     Route: 065
  7. INSULIN NOS [Suspect]
     Active Substance: INSULIN NOS
     Indication: Type 2 diabetes mellitus
     Dosage: 42 INTERNATIONAL UNIT, QD
     Route: 065
  8. OLANZAPINE [Suspect]
     Active Substance: OLANZAPINE
     Indication: Psychotic disorder
     Route: 065
  9. OLANZAPINE [Suspect]
     Active Substance: OLANZAPINE
     Indication: Schizophrenia
  10. QUETIAPINE [Suspect]
     Active Substance: QUETIAPINE
     Indication: Psychotic disorder
     Route: 048
  11. QUETIAPINE [Suspect]
     Active Substance: QUETIAPINE
     Indication: Schizophrenia
  12. RISPERIDONE [Suspect]
     Active Substance: RISPERIDONE
     Indication: Psychotic disorder
     Route: 065
  13. RISPERIDONE [Suspect]
     Active Substance: RISPERIDONE
     Indication: Schizophrenia
  14. VALPROATE [Suspect]
     Active Substance: VALPROIC ACID
     Indication: Psychotic disorder
     Route: 065
  15. VALPROATE [Suspect]
     Active Substance: VALPROIC ACID
     Indication: Schizophrenia
  16. ZOPICLONE [Suspect]
     Active Substance: ZOPICLONE
     Indication: Product used for unknown indication
     Route: 065
  17. ZUCLOPENTHIXOL [Suspect]
     Active Substance: ZUCLOPENTHIXOL
     Indication: Psychotic disorder
     Route: 065
  18. ASPIRIN [Concomitant]
     Active Substance: ASPIRIN
     Indication: Product used for unknown indication
     Route: 065
  19. BIPERIDEN [Concomitant]
     Active Substance: BIPERIDEN
     Indication: Type 2 diabetes mellitus
     Route: 065
  20. CLOZAPINE [Concomitant]
     Active Substance: CLOZAPINE
     Indication: Product used for unknown indication
     Route: 065
  21. DEXMEDETOMIDINE [Concomitant]
     Active Substance: DEXMEDETOMIDINE
     Indication: Epilepsy
     Route: 065
  22. DIAZEPAM [Concomitant]
     Active Substance: DIAZEPAM
     Indication: Psychotic disorder
     Route: 065
  23. ENALAPRIL [Concomitant]
     Active Substance: ENALAPRIL
     Indication: Product used for unknown indication
     Route: 065
  24. FUROSEMIDE [Concomitant]
     Active Substance: FUROSEMIDE
     Indication: Product used for unknown indication
     Route: 065
  25. INSULIN ASPART [Concomitant]
     Active Substance: INSULIN ASPART
     Indication: Type 2 diabetes mellitus
     Route: 065
  26. INSULIN GLARGINE [Concomitant]
     Active Substance: INSULIN GLARGINE
     Dosage: 30 INTERNATIONAL UNIT, QD
     Route: 065
  27. INSULIN GLARGINE [Concomitant]
     Active Substance: INSULIN GLARGINE
     Indication: Type 2 diabetes mellitus
     Route: 065
  28. INSULIN NOS [Concomitant]
     Active Substance: INSULIN NOS
     Indication: Type 2 diabetes mellitus
     Route: 065
  29. LACTULOSE [Concomitant]
     Active Substance: LACTULOSE
     Indication: Product used for unknown indication
     Route: 065
  30. LEVETIRACETAM [Concomitant]
     Active Substance: LEVETIRACETAM
     Indication: Psychotic disorder
     Route: 065
  31. LEVETIRACETAM [Concomitant]
     Active Substance: LEVETIRACETAM
     Indication: Epilepsy
  32. LEVOCETIRIZINE [Concomitant]
     Active Substance: LEVOCETIRIZINE
     Indication: Product used for unknown indication
     Route: 065
  33. LYNESTRENOL [Concomitant]
     Active Substance: LYNESTRENOL
     Indication: Product used for unknown indication
     Route: 065
  34. POLYETHYLENE GLYCOLS [Concomitant]
     Active Substance: POLYETHYLENE GLYCOLS
     Indication: Product used for unknown indication
     Route: 065
  35. PANTOPRAZOLE [Concomitant]
     Active Substance: PANTOPRAZOLE
     Indication: Product used for unknown indication
     Route: 065
  36. THYROXINE [Concomitant]
     Active Substance: LEVOTHYROXINE
     Indication: Product used for unknown indication
     Route: 065
  37. VALPROIC ACID [Concomitant]
     Active Substance: VALPROIC ACID
     Indication: Product used for unknown indication
     Route: 065

REACTIONS (18)
  - Urinary tract infection [Unknown]
  - Neuroleptic malignant syndrome [Recovered/Resolved]
  - Musculoskeletal stiffness [Unknown]
  - Hypotension [Unknown]
  - Unresponsive to stimuli [Unknown]
  - Hypoglycaemia [Recovered/Resolved]
  - Bradycardia [Unknown]
  - Seizure [Unknown]
  - Fall [Unknown]
  - Hypothermia [Recovered/Resolved]
  - Pneumonia [Unknown]
  - Confusional state [Unknown]
  - Blood glucose increased [Unknown]
  - Somnolence [Unknown]
  - Hyperglycaemia [Unknown]
  - Muscle rigidity [Unknown]
  - Urosepsis [Unknown]
  - Pneumonia [Unknown]
